FAERS Safety Report 8548692-X (Version None)
Quarter: 2012Q3

REPORT INFORMATION
  Report Type: 
  Country: None (occurrence: None)
  Receive Date: 20120717
  Receipt Date: 20120704
  Transmission Date: 20120928
  Serious: Yes (Other)
  Sender: FDA-Public Use
  Company Number: DSA_58433_2012

PATIENT

DRUGS (3)
  1. FLUOROURACIL [Suspect]
     Indication: OESOPHAGEAL CARCINOMA
     Dosage: 750 MG/M2 INTRAVENOUS
     Route: 042
  2. CISPLATIN [Suspect]
     Indication: OESOPHAGEAL CARCINOMA
     Dosage: 70 MG/M2 1X/3 WEEKS INTRAVENOUS DRIP
     Route: 041
  3. DOCETAXEL [Suspect]
     Indication: OESOPHAGEAL CARCINOMA
     Dosage: 70 MG/M2 1X/3 WEEKS INTRAVENOUS DRIP
     Route: 041

REACTIONS (1)
  - RENAL DISORDER [None]
